FAERS Safety Report 8945015 (Version 1)
Quarter: 2012Q4

REPORT INFORMATION
  Report Type: 
  Country: US (occurrence: US)
  Receive Date: 20121204
  Receipt Date: 20121204
  Transmission Date: 20130627
  Serious: No
  Sender: FDA-Public Use
  Company Number: US-AMGEN-USASP2012060474

PATIENT
  Sex: Male

DRUGS (1)
  1. ENBREL [Suspect]
     Indication: PSORIATIC ARTHROPATHY
     Dosage: UNK, prn generally 8 doses/month
     Dates: start: 2006

REACTIONS (2)
  - Psoriatic arthropathy [Unknown]
  - Injection site pain [Not Recovered/Not Resolved]
